FAERS Safety Report 21996573 (Version 2)
Quarter: 2023Q2

REPORT INFORMATION
  Report Type: Spontaneous
  Country: DE (occurrence: DE)
  Receive Date: 20230215
  Receipt Date: 20230425
  Transmission Date: 20230721
  Serious: Yes (Hospitalization, Other)
  Sender: FDA-Public Use
  Company Number: DE-SAMSUNG BIOEPIS-SB-2023-01662

PATIENT
  Age: 77 Year
  Sex: Female
  Weight: 60 kg

DRUGS (4)
  1. CARBOPLATIN [Suspect]
     Active Substance: CARBOPLATIN
     Indication: Breast cancer female
     Dosage: EVERY 21 DAYS?300MG
     Route: 042
     Dates: start: 20221102, end: 20230104
  2. PERTUZUMAB [Suspect]
     Active Substance: PERTUZUMAB
     Indication: Breast cancer female
     Dosage: EVERY 21 DAYS?INTRAVENOUS USE ?420 MG
     Dates: start: 20221102, end: 20230112
  3. DOCETAXEL [Suspect]
     Active Substance: DOCETAXEL
     Indication: Breast cancer female
     Dosage: EVERY 21 DAYS?100 MG
     Route: 042
     Dates: start: 20221102, end: 20230104
  4. ONTRUZANT [Suspect]
     Active Substance: TRASTUZUMAB-DTTB
     Indication: Breast cancer female
     Dosage: EVERY 21 DAYS?360MG
     Route: 042
     Dates: start: 20221102, end: 20230112

REACTIONS (4)
  - Duodenal ulcer [Recovered/Resolved]
  - Shock haemorrhagic [Recovered/Resolved]
  - Capillary leak syndrome [None]
  - Gastric haemorrhage [Recovered/Resolved]

NARRATIVE: CASE EVENT DATE: 20230112
